FAERS Safety Report 25578124 (Version 1)
Quarter: 2025Q3

REPORT INFORMATION
  Report Type: Spontaneous
  Country: JP (occurrence: JP)
  Receive Date: 20250718
  Receipt Date: 20250718
  Transmission Date: 20251021
  Serious: Yes (Other)
  Sender: BRACCO
  Company Number: JP-BAYER-2025A093014

PATIENT
  Age: 66 Year
  Sex: Male

DRUGS (2)
  1. IOPAMIRON [Suspect]
     Active Substance: IOPAMIDOL
     Indication: Angiogram
  2. IOPAMIRON [Suspect]
     Active Substance: IOPAMIDOL

REACTIONS (2)
  - Contrast encephalopathy [Recovering/Resolving]
  - Mental impairment [Unknown]
